FAERS Safety Report 6577815-7 (Version None)
Quarter: 2010Q1

REPORT INFORMATION
  Report Type: 
  Country: None (occurrence: None)
  Receive Date: 20100211
  Receipt Date: 20100127
  Transmission Date: 20100710
  Serious: Yes (Other)
  Sender: FDA-Public Use
  Company Number: GB-ROCHE-679095

PATIENT
  Sex: Male

DRUGS (1)
  1. FUZEON [Suspect]
     Indication: HIV INFECTION
     Route: 030
     Dates: start: 20050523

REACTIONS (3)
  - FAT REDISTRIBUTION [None]
  - INJECTION SITE REACTION [None]
  - LIPOMA [None]
